FAERS Safety Report 18791306 (Version 5)
Quarter: 2021Q1

REPORT INFORMATION
  Report Type: Report from Study
  Country: None (occurrence: ES)
  Receive Date: 20210127
  Receipt Date: 20210208
  Transmission Date: 20210419
  Serious: Yes (Death, Hospitalization, Other)
  Sender: FDA-Public Use
  Company Number: ES-ABBVIE-21K-144-3743165-00

PATIENT
  Age: 70 Year
  Sex: Female

DRUGS (2)
  1. DUODOPA [Suspect]
     Active Substance: CARBIDOPA\LEVODOPA
     Indication: PARKINSON^S DISEASE
     Route: 050
     Dates: start: 20190405
  2. DUODOPA [Suspect]
     Active Substance: CARBIDOPA\LEVODOPA

REACTIONS (10)
  - Respiratory distress [Recovered/Resolved]
  - Unevaluable event [Unknown]
  - Anxiety [Unknown]
  - Parkinson^s disease [Fatal]
  - Drug ineffective [Unknown]
  - COVID-19 [Recovering/Resolving]
  - Pneumothorax [Unknown]
  - Pneumonia aspiration [Recovering/Resolving]
  - Pyrexia [Recovered/Resolved]
  - Urinary tract infection [Recovering/Resolving]

NARRATIVE: CASE EVENT DATE: 202101
